FAERS Safety Report 7743240-6 (Version None)
Quarter: 2011Q3

REPORT INFORMATION
  Report Type: 
  Country: None (occurrence: None)
  Receive Date: 20110902
  Receipt Date: 20110829
  Transmission Date: 20111222
  Serious: Yes (Hospitalization, Disabling, Other)
  Sender: FDA-Public Use
  Company Number: 2010SP065508

PATIENT
  Age: 20 Year
  Sex: Female

DRUGS (2)
  1. ADVIL LIQUI-GELS [Concomitant]
  2. NUVARING [Suspect]
     Indication: CONTRACEPTION
     Dosage: VAG
     Route: 067
     Dates: start: 20070101, end: 20090101

REACTIONS (33)
  - COAGULOPATHY [None]
  - HEADACHE [None]
  - HUMAN PAPILLOMA VIRUS TEST POSITIVE [None]
  - TREATMENT NONCOMPLIANCE [None]
  - DEVICE MALFUNCTION [None]
  - WHITE BLOOD CELL COUNT INCREASED [None]
  - MULTIPLE INJURIES [None]
  - MYALGIA [None]
  - FIBRIN D DIMER INCREASED [None]
  - RED BLOOD CELL COUNT DECREASED [None]
  - PULMONARY INFARCTION [None]
  - AXILLARY PAIN [None]
  - PULMONARY EMBOLISM [None]
  - FALL [None]
  - LIGAMENT SPRAIN [None]
  - ARRESTED LABOUR [None]
  - HAEMOGLOBIN DECREASED [None]
  - HAEMATOCRIT DECREASED [None]
  - STRESS AT WORK [None]
  - DEEP VEIN THROMBOSIS [None]
  - MATERNAL EXPOSURE BEFORE PREGNANCY [None]
  - PAIN [None]
  - DYSMENORRHOEA [None]
  - CERVICAL DYSPLASIA [None]
  - OVARIAN CYST [None]
  - BACK PAIN [None]
  - DRUG ADMINISTRATION ERROR [None]
  - INTERNATIONAL NORMALISED RATIO DECREASED [None]
  - PROTEIN C DECREASED [None]
  - PROTEIN S DECREASED [None]
  - ANXIETY [None]
  - HIGH RISK PREGNANCY [None]
  - CAESAREAN SECTION [None]
